FAERS Safety Report 8854765 (Version 1)
Quarter: 2012Q4

REPORT INFORMATION
  Report Type: 
  Country: JP (occurrence: JP)
  Receive Date: 20121023
  Receipt Date: 20121023
  Transmission Date: 20130627
  Serious: Yes (Hospitalization, Other)
  Sender: FDA-Public Use
  Company Number: JP-BRISTOL-MYERS SQUIBB COMPANY-17009630

PATIENT
  Age: 70 Year
  Sex: Male

DRUGS (2)
  1. ABILIFY TABS [Suspect]
     Indication: DEPRESSION
     Route: 048
     Dates: start: 20120712, end: 20120807
  2. REMINYL [Concomitant]
     Dates: end: 20120807

REACTIONS (5)
  - Dehydration [Recovered/Resolved]
  - Blood creatine phosphokinase increased [Unknown]
  - Eczema [Recovered/Resolved]
  - Oedema [Recovered/Resolved]
  - Pyrexia [Unknown]
